FAERS Safety Report 10187914 (Version 1)
Quarter: 2014Q2

REPORT INFORMATION
  Report Type: Spontaneous
  Country: US (occurrence: US)
  Receive Date: 20140522
  Receipt Date: 20140522
  Transmission Date: 20141212
  Serious: No
  Sender: FDA-Public Use
  Company Number: US-SA-2013SA104120

PATIENT
  Sex: 0

DRUGS (2)
  1. LANTUS [Suspect]
     Indication: TYPE 2 DIABETES MELLITUS
  2. VICTOZA [Concomitant]

REACTIONS (9)
  - Depression [Unknown]
  - Malaise [Unknown]
  - Anxiety [Recovered/Resolved]
  - Panic attack [Unknown]
  - Psoriasis [Unknown]
  - Sleep disorder [Recovered/Resolved]
  - Asthenia [Recovered/Resolved]
  - Weight increased [Recovered/Resolved]
  - Blood glucose increased [Unknown]
